FAERS Safety Report 8302313-X (Version None)
Quarter: 2012Q2

REPORT INFORMATION
  Report Type: 
  Country: None (occurrence: None)
  Receive Date: 20120420
  Receipt Date: 20120412
  Transmission Date: 20120825
  Serious: Yes (Hospitalization)
  Sender: FDA-Public Use
  Company Number: JP-ASTRAZENECA-2012SE24763

PATIENT
  Sex: Male

DRUGS (2)
  1. PLAVIX [Suspect]
     Dosage: DOSE UNKNOWN
     Route: 048
     Dates: start: 20100101
  2. ZOLADEX [Suspect]
     Indication: PROSTATE CANCER
     Dosage: 10.8 MG, 12 WEEKLY
     Route: 058
     Dates: start: 20040101

REACTIONS (1)
  - INJECTION SITE HAEMATOMA [None]
